FAERS Safety Report 16183614 (Version 2)
Quarter: 2019Q2

REPORT INFORMATION
  Report Type: Spontaneous
  Country: CA (occurrence: CA)
  Receive Date: 20190411
  Receipt Date: 20190415
  Transmission Date: 20190711
  Serious: Yes (Hospitalization, Other)
  Sender: FDA-Public Use
  Company Number: CA-SA-2019SA095550

PATIENT
  Age: 73 Year
  Sex: Female

DRUGS (8)
  1. METHOTREXATE. [Concomitant]
     Active Substance: METHOTREXATE
     Indication: PLATELET COUNT DECREASED
     Dosage: 20 UNK
     Route: 048
     Dates: start: 2000, end: 2018
  2. ALENDRONATE [Concomitant]
     Active Substance: ALENDRONATE SODIUM
     Dosage: UNK UNK, QW
     Dates: start: 201903
  3. PLAQUENIL [Suspect]
     Active Substance: HYDROXYCHLOROQUINE SULFATE
     Dosage: UNK, QD
     Dates: start: 201812
  4. LEFLUNOMIDE. [Suspect]
     Active Substance: LEFLUNOMIDE
     Indication: PLATELET COUNT DECREASED
     Dosage: 10 UNK
     Dates: start: 2015, end: 2018
  5. SULFASALAZINE. [Concomitant]
     Active Substance: SULFASALAZINE
  6. NAPROXEN. [Concomitant]
     Active Substance: NAPROXEN
     Dosage: UNK
  7. ENTOCORT [Concomitant]
     Active Substance: BUDESONIDE
  8. DEPO-MEDROL [Concomitant]
     Active Substance: METHYLPREDNISOLONE ACETATE
     Dosage: 40 MG
     Dates: start: 2019, end: 2019

REACTIONS (8)
  - Back pain [Unknown]
  - Rheumatoid arthritis [Unknown]
  - Lumbar vertebral fracture [Unknown]
  - Arthralgia [Unknown]
  - Inflammatory pain [Unknown]
  - Alopecia [Unknown]
  - Pruritus [Unknown]
  - Fall [Unknown]

NARRATIVE: CASE EVENT DATE: 201808
